FAERS Safety Report 7624360-3 (Version None)
Quarter: 2011Q3

REPORT INFORMATION
  Report Type: 
  Country: None (occurrence: None)
  Receive Date: 20110720
  Receipt Date: 20110714
  Transmission Date: 20111222
  Serious: Yes (Death, Hospitalization, Other)
  Sender: FDA-Public Use
  Company Number: US-BAYER-2011-042967

PATIENT
  Sex: Male

DRUGS (1)
  1. NEXAVAR [Suspect]
     Indication: HEPATIC NEOPLASM MALIGNANT
     Dosage: DAILY DOSE 800 MG
     Route: 048
     Dates: start: 20101013, end: 20101023

REACTIONS (6)
  - RENAL IMPAIRMENT [None]
  - MUSCULAR WEAKNESS [None]
  - DEATH [None]
  - PYREXIA [None]
  - FAECAL INCONTINENCE [None]
  - WEIGHT DECREASED [None]
